FAERS Safety Report 5739717-5 (Version None)
Quarter: 2008Q2

REPORT INFORMATION
  Report Type: 
  Country: None (occurrence: None)
  Receive Date: 20080513
  Receipt Date: 20080428
  Transmission Date: 20081010
  Serious: Yes (Other)
  Sender: FDA-Public Use
  Company Number: 100#08#2008-02493

PATIENT
  Age: 57 Year
  Sex: Female

DRUGS (3)
  1. CYCLOSPORINE [Suspect]
     Indication: IMMUNOSUPPRESSION
  2. AZATHIOPRINE [Concomitant]
  3. CORTICOSTEROIDS (CORTICOSTEROIDS) [Concomitant]

REACTIONS (7)
  - APHASIA [None]
  - CONVULSION [None]
  - DYSARTHRIA [None]
  - ENCEPHALITIS [None]
  - EPILEPSY [None]
  - LEUKOENCEPHALOPATHY [None]
  - PYREXIA [None]
